FAERS Safety Report 4965214-0 (Version None)
Quarter: 2006Q1

REPORT INFORMATION
  Report Type: 
  Country: None (occurrence: None)
  Receive Date: 20060201
  Receipt Date: 20051213
  Transmission Date: 20060701
  Serious: No
  Sender: FDA-Public Use
  Company Number: FACT0500727

PATIENT
  Age: 69 Year
  Sex: Female
  Weight: 57.1 kg

DRUGS (2)
  1. FACTIVE [Suspect]
     Indication: RESPIRATORY TRACT INFECTION BACTERIAL
     Dosage: 320 MG, QD, ORAL
     Route: 048
     Dates: start: 20051128, end: 20051208
  2. COUMADIN [Concomitant]

REACTIONS (3)
  - PAIN [None]
  - PYREXIA [None]
  - URTICARIA GENERALISED [None]
